FAERS Safety Report 15884578 (Version 1)
Quarter: 2019Q1

REPORT INFORMATION
  Report Type: Spontaneous
  Country: US (occurrence: US)
  Receive Date: 20190105
  Receipt Date: 20190105
  Transmission Date: 20190417
  Serious: Yes (Death, Hospitalization)
  Sender: FDA-Public Use
  Company Number: None

PATIENT
  Age: 70 Year
  Sex: Female
  Weight: 53.5 kg

DRUGS (1)
  1. PAZOPANIB (GW786034) (737754) [Suspect]
     Active Substance: PAZOPANIB
     Dates: end: 20181205

REACTIONS (14)
  - Haemorrhagic ascites [None]
  - Hypophagia [None]
  - Mesenteric neoplasm [None]
  - Agitation [None]
  - Haemoglobin decreased [None]
  - Metastases to peritoneum [None]
  - Hydronephrosis [None]
  - Hepatic mass [None]
  - Haemorrhage [None]
  - Treatment noncompliance [None]
  - Metastases to lung [None]
  - Soft tissue mass [None]
  - Pelvic mass [None]
  - Packed red blood cell transfusion [None]

NARRATIVE: CASE EVENT DATE: 20181231
